FAERS Safety Report 5950530-6 (Version None)
Quarter: 2008Q4

REPORT INFORMATION
  Report Type: 
  Country: None (occurrence: None)
  Receive Date: 20081112
  Receipt Date: 20081106
  Transmission Date: 20090506
  Serious: Yes (Death, Life-Threatening, Hospitalization)
  Sender: FDA-Public Use
  Company Number: DE-BRISTOL-MYERS SQUIBB COMPANY-14394605

PATIENT
  Age: 73 Year
  Sex: Female

DRUGS (2)
  1. CETUXIMAB [Suspect]
     Indication: NON-SMALL CELL LUNG CANCER
     Dosage: FIRST INFUSION: 26-AUG-2008; INTERRUPTED PRIOR TO 21-OCT-2008 DOSE.
     Route: 042
     Dates: start: 20081014, end: 20081014
  2. RADIATION THERAPY [Suspect]
     Indication: NON-SMALL CELL LUNG CANCER

REACTIONS (2)
  - ENDOCARDITIS BACTERIAL [None]
  - SEPSIS [None]
